FAERS Safety Report 8080801-1 (Version None)
Quarter: 2012Q1

REPORT INFORMATION
  Report Type: 
  Country: None (occurrence: None)
  Receive Date: 20120130
  Receipt Date: 20120125
  Transmission Date: 20120608
  Serious: Yes (Hospitalization)
  Sender: FDA-Public Use
  Company Number: US-MEDIMMUNE-MEDI-0014046

PATIENT
  Sex: Male

DRUGS (3)
  1. SYNAGIS [Suspect]
     Route: 030
     Dates: start: 20111128, end: 20111128
  2. FLU-SHOT [Suspect]
  3. MULTI-VITAMIN [Concomitant]

REACTIONS (2)
  - BRONCHIOLITIS [None]
  - UPPER RESPIRATORY TRACT INFECTION [None]
